FAERS Safety Report 24241099 (Version 3)
Quarter: 2024Q3

REPORT INFORMATION
  Report Type: Spontaneous
  Country: JP (occurrence: JP)
  Receive Date: 20240823
  Receipt Date: 20240912
  Transmission Date: 20241017
  Serious: No
  Sender: JOHNSON AND JOHNSON
  Company Number: JP-MTPC-MTPC2024-0017599

PATIENT
  Age: 4 Decade
  Sex: Male

DRUGS (4)
  1. REMICADE [Suspect]
     Active Substance: INFLIXIMAB
     Indication: Crohn^s disease
     Dosage: UNK
     Route: 041
  2. REMICADE [Suspect]
     Active Substance: INFLIXIMAB
     Dosage: UNK
     Route: 041
  3. STELARA [Suspect]
     Active Substance: USTEKINUMAB
     Indication: Crohn^s disease
     Route: 041
  4. ADALIMUMAB [Suspect]
     Active Substance: ADALIMUMAB
     Indication: Crohn^s disease
     Route: 065

REACTIONS (10)
  - Paradoxical drug reaction [Unknown]
  - Axial spondyloarthritis [Unknown]
  - Cutaneous symptom [Unknown]
  - Colonoscopy abnormal [Unknown]
  - Axial spondyloarthritis [Unknown]
  - Vertebral lesion [Unknown]
  - Vertebral end plate inflammation [Unknown]
  - Psoriasis [Unknown]
  - Back pain [Unknown]
  - Back pain [Unknown]
